FAERS Safety Report 6731101-0 (Version None)
Quarter: 2010Q2

REPORT INFORMATION
  Report Type: 
  Country: None (occurrence: None)
  Receive Date: 20100518
  Receipt Date: 20100505
  Transmission Date: 20101027
  Serious: Yes (Hospitalization, Other)
  Sender: FDA-Public Use
  Company Number: US-ELI_LILLY_AND_COMPANY-US201004002101

PATIENT
  Sex: Female

DRUGS (18)
  1. GEMCITABINE HCL [Suspect]
     Indication: TRANSITIONAL CELL CANCER OF THE RENAL PELVIS AND URETER
  2. ALIMTA [Suspect]
     Indication: TRANSITIONAL CELL CANCER OF RENAL PELVIS AND URETER METASTATIC
     Dosage: 680 MG, UNK
     Dates: start: 20100204
  3. ALIMTA [Suspect]
     Dosage: 1235 MG, UNK
  4. CARBOPLATIN [Concomitant]
  5. TAXOL [Concomitant]
     Indication: TRANSITIONAL CELL CANCER OF RENAL PELVIS AND URETER METASTATIC
     Dosage: UNK, WEEKLY (1/W)
     Dates: start: 20090101, end: 20100101
  6. ZOMETA [Concomitant]
  7. VITAMIN B-12 [Concomitant]
  8. FOLIC ACID [Concomitant]
     Dosage: 1 MG, DAILY (1/D)
  9. IRON [Concomitant]
  10. DURAGESIC-100 [Concomitant]
     Dosage: 100 UG, QOD
     Route: 062
  11. DURAGESIC-100 [Concomitant]
     Dosage: 175 UG, EVERY 72 HOURS
  12. ATIVAN [Concomitant]
     Dosage: 0.5 MG, AS NEEDED
  13. COLACE [Concomitant]
     Indication: CONSTIPATION
     Dosage: 100 MG, EVERY 12 HOURS
     Route: 048
  14. OXYCODONE [Concomitant]
     Indication: PAIN
     Dosage: 10 MG, AS NEEDED
  15. VALIUM [Concomitant]
     Indication: MUSCLE SPASMS
     Dosage: 5 MG, AS NEEDED
  16. VALIUM [Concomitant]
     Dosage: 2 MG, EVERY 12 HOURS
     Route: 048
  17. TOPROL-XL [Concomitant]
     Dosage: 50 MG, DAILY (1/D)
     Route: 048
  18. CELEXA [Concomitant]
     Dosage: 30 MG, DAILY (1/D)
     Route: 048

REACTIONS (12)
  - ANAEMIA [None]
  - CELLULITIS [None]
  - DEHYDRATION [None]
  - HAEMATOMA [None]
  - HYPERKALAEMIA [None]
  - MALIGNANT NEOPLASM PROGRESSION [None]
  - OFF LABEL USE [None]
  - PAIN IN EXTREMITY [None]
  - POOR PERSONAL HYGIENE [None]
  - RECALL PHENOMENON [None]
  - RENAL CANCER [None]
  - RENAL FAILURE ACUTE [None]
